FAERS Safety Report 11525551 (Version 1)
Quarter: 2015Q3

REPORT INFORMATION
  Report Type: Spontaneous
  Country: AU (occurrence: AU)
  Receive Date: 20150918
  Receipt Date: 20150918
  Transmission Date: 20151125
  Serious: Yes (Other)
  Sender: FDA-Public Use
  Company Number: AU-VIIV HEALTHCARE LIMITED-AU2015GSK100953

PATIENT
  Age: 51 Year
  Sex: Male
  Weight: 63 kg

DRUGS (1)
  1. DOLUTEGRAVIR [Suspect]
     Active Substance: DOLUTEGRAVIR
     Indication: THERAPY CHANGE
     Dosage: 50 MG, UNK
     Route: 048
     Dates: start: 20150210

REACTIONS (9)
  - Asthenia [Unknown]
  - Tremor [Unknown]
  - Nausea [Unknown]
  - Abdominal discomfort [Unknown]
  - Drug ineffective [Unknown]
  - Malaise [Recovered/Resolved]
  - Presyncope [Unknown]
  - Loss of consciousness [Unknown]
  - Cold sweat [Unknown]

NARRATIVE: CASE EVENT DATE: 20150210
